FAERS Safety Report 21853329 (Version 1)
Quarter: 2023Q1

REPORT INFORMATION
  Report Type: Spontaneous
  Country: US (occurrence: US)
  Receive Date: 20230112
  Receipt Date: 20230112
  Transmission Date: 20230418
  Serious: Yes (Other)
  Sender: FDA-Public Use
  Company Number: US-STERISCIENCE B.V.-2023-ST-000036

PATIENT
  Age: 19 Year
  Sex: Female

DRUGS (4)
  1. BUPIVACAINE [Suspect]
     Active Substance: BUPIVACAINE
     Indication: Spinal anaesthesia
     Dosage: 1.6 MILLILITER
     Route: 065
  2. PHENYLEPHRINE [Suspect]
     Active Substance: PHENYLEPHRINE HYDROCHLORIDE
     Indication: Product used for unknown indication
     Dosage: UNK
  3. EPHEDRINE [Suspect]
     Active Substance: EPHEDRINE
     Indication: Product used for unknown indication
     Dosage: UNK
  4. OXYTOCIN [Suspect]
     Active Substance: OXYTOCIN
     Indication: Postpartum haemorrhage
     Dosage: UNK, INFUSION
     Route: 042

REACTIONS (6)
  - Distributive shock [Unknown]
  - Hypoxia [Unknown]
  - Nausea [Unknown]
  - Hypotension [Unknown]
  - Vomiting [Unknown]
  - Maternal exposure during delivery [Unknown]
